FAERS Safety Report 15740006 (Version 3)
Quarter: 2019Q3

REPORT INFORMATION
  Report Type: Spontaneous
  Country: US (occurrence: US)
  Receive Date: 20181219
  Receipt Date: 20190717
  Transmission Date: 20191004
  Serious: Yes (Other)
  Sender: FDA-Public Use
  Company Number: US-SA-2018SA343297

PATIENT
  Age: 60 Year
  Sex: Female
  Weight: 86.18 kg

DRUGS (8)
  1. CYTOXAN [Concomitant]
     Active Substance: CYCLOPHOSPHAMIDE
  2. TRAVATAN [Concomitant]
     Active Substance: TRAVOPROST
     Dosage: UNK
     Dates: start: 20100101
  3. TAXOTERE [Suspect]
     Active Substance: DOCETAXEL
     Indication: BREAST CANCER FEMALE
     Dosage: 141 MG, Q3W
     Route: 042
     Dates: start: 20101026, end: 20101026
  4. NEOSAR [Concomitant]
     Active Substance: CYCLOPHOSPHAMIDE
  5. LOPRESSOR [Concomitant]
     Active Substance: METOPROLOL TARTRATE
     Dosage: UNK
     Dates: start: 20030101
  6. TAXOTERE [Suspect]
     Active Substance: DOCETAXEL
     Dosage: UNK UNK, Q3W (141 MG; 160 MG)
     Route: 042
     Dates: start: 20101228, end: 20101228
  7. QUINAPRIL. [Concomitant]
     Active Substance: QUINAPRIL
     Dosage: UNK
     Dates: start: 20030101
  8. BACITRACIN. [Concomitant]
     Active Substance: BACITRACIN
     Dosage: UNK
     Dates: start: 20030101

REACTIONS (1)
  - Alopecia [Recovering/Resolving]

NARRATIVE: CASE EVENT DATE: 20110413
